FAERS Safety Report 12698344 (Version 1)
Quarter: 2016Q3

REPORT INFORMATION
  Report Type: Spontaneous
  Country: US (occurrence: US)
  Receive Date: 20160830
  Receipt Date: 20160830
  Transmission Date: 20161109
  Serious: No
  Sender: FDA-Public Use
  Company Number: US-JNJFOC-20151018753

PATIENT
  Age: 11 Year
  Sex: Male

DRUGS (6)
  1. RISPERDAL [Suspect]
     Active Substance: RISPERIDONE
     Indication: INTERMITTENT EXPLOSIVE DISORDER
     Route: 048
     Dates: start: 200012, end: 200103
  2. RISPERDAL [Suspect]
     Active Substance: RISPERIDONE
     Indication: PERSISTENT DEPRESSIVE DISORDER
     Route: 048
     Dates: start: 200012, end: 200103
  3. RISPERDAL [Suspect]
     Active Substance: RISPERIDONE
     Indication: INTERMITTENT EXPLOSIVE DISORDER
     Route: 048
     Dates: end: 2013
  4. RISPERDAL [Suspect]
     Active Substance: RISPERIDONE
     Indication: PERSISTENT DEPRESSIVE DISORDER
     Route: 048
     Dates: start: 200103, end: 200312
  5. RISPERDAL [Suspect]
     Active Substance: RISPERIDONE
     Indication: INTERMITTENT EXPLOSIVE DISORDER
     Route: 048
     Dates: start: 200103, end: 200312
  6. RISPERDAL [Suspect]
     Active Substance: RISPERIDONE
     Indication: PERSISTENT DEPRESSIVE DISORDER
     Route: 048
     Dates: end: 2013

REACTIONS (4)
  - Gynaecomastia [Unknown]
  - Product use issue [Unknown]
  - Abnormal weight gain [Unknown]
  - Off label use [Unknown]

NARRATIVE: CASE EVENT DATE: 200012
